FAERS Safety Report 7207109-8 (Version None)
Quarter: 2011Q1

REPORT INFORMATION
  Report Type: 
  Country: None (occurrence: None)
  Receive Date: 20110103
  Receipt Date: 20101220
  Transmission Date: 20110831
  Serious: Yes (Hospitalization)
  Sender: FDA-Public Use
  Company Number: US-ELI_LILLY_AND_COMPANY-US201012006529

PATIENT
  Age: 60 Year
  Sex: Male

DRUGS (2)
  1. PRASUGREL HYDROCHLORIDE [Suspect]
     Indication: ACUTE CORONARY SYNDROME
     Dates: start: 20100610
  2. ASPIRIN [Concomitant]
     Dosage: 325 MG, UNKNOWN
     Dates: start: 20100609

REACTIONS (2)
  - GASTROINTESTINAL HAEMORRHAGE [None]
  - ANGINA UNSTABLE [None]
